FAERS Safety Report 8113175-8 (Version None)
Quarter: 2012Q1

REPORT INFORMATION
  Report Type: 
  Country: None (occurrence: None)
  Receive Date: 20120203
  Receipt Date: 20120124
  Transmission Date: 20120608
  Serious: Yes (Other)
  Sender: FDA-Public Use
  Company Number: PHHY2012PL006627

PATIENT
  Age: 72 Year
  Sex: Male

DRUGS (6)
  1. EVEROLIMUS [Suspect]
     Indication: RENAL TRANSPLANT
     Dosage: 1.5 MG, BID
  2. EVEROLIMUS [Suspect]
     Dosage: 1 MG, BID
  3. EVEROLIMUS [Suspect]
     Dosage: 1.75 MG, BID
  4. MYCOPHENOLATE MEFETIL [Concomitant]
     Dosage: 500 MG, BID
  5. EVEROLIMUS [Suspect]
     Dosage: 0.75 MG, BID
  6. PREDNISONE TAB [Concomitant]
     Dosage: 10 MG, QD

REACTIONS (7)
  - DYSPNOEA [None]
  - GENERAL PHYSICAL HEALTH DETERIORATION [None]
  - MYCOBACTERIAL INFECTION [None]
  - IMMUNOSUPPRESSANT DRUG LEVEL INCREASED [None]
  - COUGH [None]
  - PULMONARY EMBOLISM [None]
  - PULMONARY TUBERCULOSIS [None]
